FAERS Safety Report 25923819 (Version 1)
Quarter: 2025Q4

REPORT INFORMATION
  Report Type: Spontaneous
  Country: CH (occurrence: CH)
  Receive Date: 20251015
  Receipt Date: 20251015
  Transmission Date: 20260118
  Serious: Yes (Life-Threatening, Other)
  Sender: TEVA
  Company Number: None

PATIENT
  Age: 85 Year
  Sex: Female
  Weight: 42 kg

DRUGS (18)
  1. FENTANYL [Suspect]
     Active Substance: FENTANYL
     Indication: Pain
     Dosage: TIME INTERVAL: TOTAL: FENTANYL MEPHA
     Route: 042
     Dates: start: 20250831, end: 20250831
  2. FENTANYL [Suspect]
     Active Substance: FENTANYL
     Indication: Pain
     Dosage: TIME INTERVAL: TOTAL
     Route: 042
     Dates: start: 20250831, end: 20250831
  3. FENTANYL [Suspect]
     Active Substance: FENTANYL
     Indication: Pain
     Dosage: TIME INTERVAL: TOTAL
     Route: 042
     Dates: start: 20250831, end: 20250831
  4. TORSEMIDE [Concomitant]
     Active Substance: TORSEMIDE
     Indication: Product used for unknown indication
     Route: 065
  5. CANDESARTAN [Concomitant]
     Active Substance: CANDESARTAN
     Indication: Product used for unknown indication
     Route: 065
  6. FERROUS SULFATE [Concomitant]
     Active Substance: FERROUS SULFATE
     Indication: Product used for unknown indication
     Dosage: SUSTAINED-RELEASE TABLETS
     Route: 065
  7. ESCITALOPRAM [Concomitant]
     Active Substance: ESCITALOPRAM OXALATE
     Indication: Product used for unknown indication
     Route: 065
  8. DAPAGLIFLOZIN [Concomitant]
     Active Substance: DAPAGLIFLOZIN
     Indication: Product used for unknown indication
     Route: 065
  9. ATORVASTATIN [Concomitant]
     Active Substance: ATORVASTATIN
     Indication: Product used for unknown indication
     Route: 065
  10. DUPHALAC [Concomitant]
     Active Substance: LACTULOSE
     Indication: Product used for unknown indication
     Route: 065
  11. METOPROLOL [Concomitant]
     Active Substance: METOPROLOL
     Indication: Product used for unknown indication
     Dosage: SUSTAINED-RELEASE TABLETS
     Route: 065
  12. TOUJEO [Concomitant]
     Active Substance: INSULIN GLARGINE
     Indication: Product used for unknown indication
     Dosage: SOL INJ 300IU/ML
     Route: 065
  13. KETALAR [Suspect]
     Active Substance: KETAMINE HYDROCHLORIDE
     Indication: Pain
     Dosage: TIME INTERVAL: TOTAL
     Route: 042
     Dates: start: 20250831, end: 20250831
  14. KETALAR [Suspect]
     Active Substance: KETAMINE HYDROCHLORIDE
     Indication: Pain
     Dosage: TIME INTERVAL: TOTAL
     Route: 042
     Dates: start: 20250831, end: 20250831
  15. CLOMETHIAZOLE [Concomitant]
     Active Substance: CLOMETHIAZOLE
     Indication: Product used for unknown indication
     Route: 065
  16. HUMALOG [Concomitant]
     Active Substance: INSULIN LISPRO
     Indication: Product used for unknown indication
     Dosage: 100IU/ML (ACCORDING TO SCHEDULE), HUMALOG KWIKPEN
     Route: 065
  17. ELIQUIS [Concomitant]
     Active Substance: APIXABAN
     Indication: Product used for unknown indication
     Route: 065
  18. CALCIUM CARBONATE\CHOLECALCIFEROL [Concomitant]
     Active Substance: CALCIUM CARBONATE\CHOLECALCIFEROL
     Indication: Product used for unknown indication
     Dosage: 500/800
     Route: 065

REACTIONS (2)
  - Respiratory depression [Recovered/Resolved]
  - Vomiting [Recovered/Resolved]

NARRATIVE: CASE EVENT DATE: 20250831
